FAERS Safety Report 10674491 (Version 2)
Quarter: 2015Q1

REPORT INFORMATION
  Report Type: Spontaneous
  Country: US (occurrence: US)
  Receive Date: 20141224
  Receipt Date: 20150210
  Transmission Date: 20150720
  Serious: No
  Sender: FDA-Public Use
  Company Number: US-PFIZER INC-2014353323

PATIENT
  Age: 55 Year
  Sex: Female

DRUGS (6)
  1. ALEVE [Suspect]
     Active Substance: NAPROXEN SODIUM
     Dosage: UNK
  2. CODEINE [Suspect]
     Active Substance: CODEINE
     Dosage: UNK
  3. AUGMENTIN [Suspect]
     Active Substance: AMOXICILLIN\CLAVULANATE POTASSIUM
     Dosage: UNK
  4. NEURONTIN [Suspect]
     Active Substance: GABAPENTIN
     Dosage: UNK
  5. LYRICA [Suspect]
     Active Substance: PREGABALIN
     Dosage: 50 MG, 2X/DAY
     Route: 048
     Dates: start: 20110608, end: 20110620
  6. LYRICA [Suspect]
     Active Substance: PREGABALIN
     Dosage: 75 MG, DAILY BED TIME
     Route: 048
     Dates: start: 20140714

REACTIONS (2)
  - Feeling abnormal [Recovered/Resolved]
  - Drug hypersensitivity [Unknown]
